FAERS Safety Report 9897329 (Version 2)
Quarter: 2015Q1

REPORT INFORMATION
  Report Type: Spontaneous
  Country: US (occurrence: US)
  Receive Date: 20140214
  Receipt Date: 20150116
  Transmission Date: 20150721
  Serious: Yes (Hospitalization)
  Sender: FDA-Public Use
  Company Number: US-BAYER-2014-023398

PATIENT
  Age: 30 Year
  Sex: Female
  Weight: 81.18 kg

DRUGS (2)
  1. MIRENA [Suspect]
     Active Substance: LEVONORGESTREL
     Indication: CONTRACEPTION
     Dosage: 20 MCG/24HR, CONT
     Route: 015
     Dates: start: 20100303, end: 20120810
  2. VALTREX [Concomitant]
     Active Substance: VALACYCLOVIR HYDROCHLORIDE
     Indication: GENITAL HERPES
     Dosage: UNK UNK, PRN
     Dates: start: 2003

REACTIONS (7)
  - Embedded device [None]
  - Pain [None]
  - Medical device discomfort [None]
  - Injury [None]
  - Medical device pain [None]
  - Scar [None]
  - Procedural pain [None]

NARRATIVE: CASE EVENT DATE: 20120810
